FAERS Safety Report 9926086 (Version 2)
Quarter: 2014Q1

REPORT INFORMATION
  Report Type: Spontaneous
  Country: IL (occurrence: IL)
  Receive Date: 20140226
  Receipt Date: 20140307
  Transmission Date: 20141002
  Serious: Yes (Congenital Anomaly)
  Sender: FDA-Public Use
  Company Number: IL-009507513-1402ISR012363

PATIENT
  Sex: 0

DRUGS (3)
  1. NUVARING [Suspect]
     Indication: CONTRACEPTION
     Dosage: UNK
     Route: 064
     Dates: start: 201304
  2. ARCOXIA 30 MG TABLETS [Suspect]
     Indication: JOINT INJURY
     Dosage: UNK
     Route: 064
  3. CELCOX [Suspect]
     Indication: JOINT INJURY
     Route: 064

REACTIONS (2)
  - Congenital cerebral cyst [Unknown]
  - Foetal exposure during pregnancy [Unknown]
